FAERS Safety Report 6383641-4 (Version None)
Quarter: 2009Q3

REPORT INFORMATION
  Report Type: 
  Country: None (occurrence: None)
  Receive Date: 20090929
  Receipt Date: 20090929
  Transmission Date: 20100115
  Serious: Yes (Hospitalization)
  Sender: FDA-Public Use
  Company Number: None

PATIENT
  Weight: 46.9019 kg

DRUGS (12)
  1. BEVACIZUMAB [Suspect]
     Indication: OESOPHAGEAL ADENOCARCINOMA METASTATIC
     Dosage: 7.5 MG/KG D1/22DAYCYCLE
     Dates: start: 20090609, end: 20090811
  2. OXALIPLATIN [Suspect]
     Indication: OESOPHAGEAL ADENOCARCINOMA METASTATIC
     Dosage: 75MG/M2
     Dates: start: 20090609, end: 20090811
  3. DOCETAXEL [Suspect]
     Indication: OESOPHAGEAL ADENOCARCINOMA METASTATIC
     Dosage: 70MG/M2 D1
     Dates: start: 20090609, end: 20090811
  4. DULCOLAX [Concomitant]
  5. EMLA [Concomitant]
  6. MEGACE [Concomitant]
  7. OMEPRAZOLE [Concomitant]
  8. ODANSETRON [Concomitant]
  9. POTASSIUM CHLORIDE [Concomitant]
  10. COMPAZINE [Concomitant]
  11. PHENERGAN [Concomitant]
  12. SUCRALFATE [Concomitant]

REACTIONS (4)
  - DYSPHAGIA [None]
  - NAUSEA [None]
  - PARAESTHESIA ORAL [None]
  - VOMITING [None]
